FAERS Safety Report 8302253-6 (Version None)
Quarter: 2012Q2

REPORT INFORMATION
  Report Type: 
  Country: None (occurrence: None)
  Receive Date: 20120420
  Receipt Date: 20120410
  Transmission Date: 20120825
  Serious: Yes (Other)
  Sender: FDA-Public Use
  Company Number: ES-JNJFOC-20120404667

PATIENT
  Age: 19 Year
  Sex: Female

DRUGS (1)
  1. INFLIXIMAB, RECOMBINANT [Suspect]
     Indication: IRIDOCYCLITIS
     Dosage: DOSE REPORTED AS 3-5 MG/KG ON WEEKS 0, 2, 6, 8
     Route: 042

REACTIONS (3)
  - IRIDOCYCLITIS [None]
  - CYSTOID MACULAR OEDEMA [None]
  - LUPUS-LIKE SYNDROME [None]
